FAERS Safety Report 23806677 (Version 2)
Quarter: 2024Q3

REPORT INFORMATION
  Report Type: Spontaneous
  Country: US (occurrence: US)
  Receive Date: 20240502
  Receipt Date: 20240914
  Transmission Date: 20241016
  Serious: Yes (Disabling)
  Sender: ABBVIE
  Company Number: US-ABBVIE-5740342

PATIENT
  Sex: Female
  Weight: 58 kg

DRUGS (10)
  1. LINZESS [Suspect]
     Active Substance: LINACLOTIDE
     Indication: Abdominal distension
     Dosage: FORM STRENGTH 145 MCG
     Route: 048
     Dates: start: 20240315, end: 20240317
  2. LINZESS [Suspect]
     Active Substance: LINACLOTIDE
     Indication: Abdominal distension
     Dosage: FORM STRENGTH 145 MCG
     Route: 048
     Dates: start: 20240323, end: 20240324
  3. PREVACID [Concomitant]
     Active Substance: LANSOPRAZOLE
     Indication: Hiatus hernia
     Route: 048
     Dates: start: 2000
  4. CITALOPRAM [Concomitant]
     Active Substance: CITALOPRAM\CITALOPRAM HYDROBROMIDE
     Indication: Product used for unknown indication
     Route: 048
     Dates: start: 2000
  5. MEDROXYPROGESTERONE [Concomitant]
     Active Substance: MEDROXYPROGESTERONE
     Indication: Menopause
     Route: 048
     Dates: start: 2000
  6. ESTRADIOL [Concomitant]
     Active Substance: ESTRADIOL
     Indication: Menopause
     Route: 048
     Dates: start: 2000
  7. CELEBREX [Concomitant]
     Active Substance: CELECOXIB
     Indication: Fibromyalgia
     Route: 048
     Dates: start: 2000
  8. VITAMIN E [Concomitant]
     Active Substance: .ALPHA.-TOCOPHEROL
     Indication: Fibrocystic breast disease
     Route: 048
  9. EVENING PRIMROSE [Concomitant]
     Indication: Fibrocystic breast disease
     Route: 048
  10. ZYRTEC [Concomitant]
     Active Substance: CETIRIZINE HYDROCHLORIDE
     Indication: Urticaria chronic
     Route: 048

REACTIONS (10)
  - Abdominal distension [Recovered/Resolved]
  - Abdominal distension [Recovered/Resolved]
  - Diarrhoea [Recovered/Resolved]
  - Abdominal pain [Recovered/Resolved]
  - Adverse drug reaction [Recovered/Resolved]
  - Adverse drug reaction [Recovered/Resolved]
  - Diarrhoea [Recovered/Resolved]
  - Abdominal pain [Recovered/Resolved]
  - Defaecation urgency [Unknown]
  - Anal incontinence [Unknown]

NARRATIVE: CASE EVENT DATE: 20240101
